FAERS Safety Report 13457708 (Version 1)
Quarter: 2017Q2

REPORT INFORMATION
  Report Type: Spontaneous
  Country: US (occurrence: US)
  Receive Date: 20170419
  Receipt Date: 20170419
  Transmission Date: 20170830
  Serious: No
  Sender: FDA-Public Use
  Company Number: US-AMGEN-USASP2017057411

PATIENT
  Age: 26 Year
  Sex: Male

DRUGS (6)
  1. PREDNISONE. [Suspect]
     Active Substance: PREDNISONE
     Indication: PRODUCT USED FOR UNKNOWN INDICATION
     Route: 065
  2. ENBREL [Suspect]
     Active Substance: ETANERCEPT
     Dosage: UNK UNK, QWK
     Route: 065
  3. ENBREL [Suspect]
     Active Substance: ETANERCEPT
     Dosage: UNK UNK, QWK
     Route: 065
  4. ENBREL [Suspect]
     Active Substance: ETANERCEPT
     Indication: SYNOVITIS
     Dosage: UNK UNK, QWK
     Route: 065
     Dates: start: 2011
  5. ENBREL [Suspect]
     Active Substance: ETANERCEPT
     Indication: LYME DISEASE
     Dosage: UNK UNK, QWK
     Route: 065
  6. ENBREL [Suspect]
     Active Substance: ETANERCEPT
     Dosage: UNK UNK, QWK
     Route: 065

REACTIONS (3)
  - Food poisoning [Unknown]
  - Off label use [Unknown]
  - Arthritis reactive [Unknown]

NARRATIVE: CASE EVENT DATE: 2011
